FAERS Safety Report 15697394 (Version 1)
Quarter: 2018Q4

REPORT INFORMATION
  Report Type: Spontaneous
  Country: DK (occurrence: DK)
  Receive Date: 20181207
  Receipt Date: 20181207
  Transmission Date: 20190205
  Serious: Yes (Hospitalization)
  Sender: FDA-Public Use
  Company Number: DK-TEVA-2018-DK-982626

PATIENT
  Age: 55 Year
  Sex: Female

DRUGS (2)
  1. CARVEDILOL ^HEXAL^ [Concomitant]
     Indication: HYPERTENSION
     Dosage: 12.5 MILLIGRAM DAILY; STYRKE: 12,5 MG.
     Route: 048
     Dates: start: 20161129, end: 201704
  2. ATORVASTATIN ^TEVA^ [Suspect]
     Active Substance: ATORVASTATIN
     Indication: HYPERCHOLESTEROLAEMIA
     Dosage: 80 MILLIGRAM DAILY; STYRKE: 80 MG.
     Route: 048
     Dates: start: 20161127

REACTIONS (5)
  - Hepatic enzyme abnormal [Not Recovered/Not Resolved]
  - Alopecia [Unknown]
  - Hyperglycaemia [Unknown]
  - Angina pectoris [Not Recovered/Not Resolved]
  - Cholelithiasis [Not Recovered/Not Resolved]

NARRATIVE: CASE EVENT DATE: 2017
